FAERS Safety Report 23213084 (Version 1)
Quarter: 2023Q4

REPORT INFORMATION
  Report Type: Spontaneous
  Country: CN (occurrence: CN)
  Receive Date: 20231121
  Receipt Date: 20231121
  Transmission Date: 20240110
  Serious: Yes (Hospitalization, Other)
  Sender: FDA-Public Use
  Company Number: CN-SA-SAC20231116000306

PATIENT
  Age: 74 Year
  Sex: Female
  Weight: 40 kg

DRUGS (2)
  1. CLOPIDOGREL BISULFATE [Suspect]
     Active Substance: CLOPIDOGREL BISULFATE
     Indication: Coronary artery disease
     Dosage: 75 MG, QD
     Route: 048
     Dates: start: 20201125, end: 20230825
  2. ASPIRIN [Suspect]
     Active Substance: ASPIRIN
     Indication: Coronary artery disease
     Dosage: 0.1 G, QD
     Route: 048
     Dates: start: 20201025, end: 20230825

REACTIONS (13)
  - Ovarian cyst [Recovering/Resolving]
  - Gastrointestinal haemorrhage [Recovering/Resolving]
  - Haematochezia [Recovering/Resolving]
  - Blood loss anaemia [Recovering/Resolving]
  - Hypoproteinaemia [Recovering/Resolving]
  - Hyperkalaemia [Recovering/Resolving]
  - Hyponatraemia [Recovering/Resolving]
  - Hepatic cyst [Recovering/Resolving]
  - Pancreatic duct dilatation [Recovering/Resolving]
  - Cystitis [Recovering/Resolving]
  - Upper gastrointestinal haemorrhage [Recovering/Resolving]
  - Chronic gastritis [Recovering/Resolving]
  - Diverticulum intestinal [Recovering/Resolving]

NARRATIVE: CASE EVENT DATE: 20231023
